FAERS Safety Report 6290864-1 (Version None)
Quarter: 2009Q3

REPORT INFORMATION
  Report Type: 
  Country: None (occurrence: None)
  Receive Date: 20090728
  Receipt Date: 20090728
  Transmission Date: 20100115
  Serious: No
  Sender: FDA-Public Use
  Company Number: None

PATIENT
  Sex: Female
  Weight: 58 kg

DRUGS (3)
  1. CISPLATIN 122 MG [Suspect]
     Dosage: 122 MG IP ON DAY 1 (7/10/09)
     Route: 033
     Dates: start: 20090710
  2. TAXOL [Suspect]
     Dosage: 220MG IV ON DAY 1 (7/10/09); 96MG IP ON DAY 8 (7/17/09)
     Route: 042
     Dates: start: 20090710
  3. TAXOL [Suspect]
     Dosage: 220MG IV ON DAY 1 (7/10/09); 96MG IP ON DAY 8 (7/17/09)
     Route: 042
     Dates: start: 20090717

REACTIONS (1)
  - NEUTROPENIA [None]
